APPROVED DRUG PRODUCT: FEXOFENADINE HYDROCHLORIDE
Active Ingredient: FEXOFENADINE HYDROCHLORIDE
Strength: 180MG
Dosage Form/Route: TABLET;ORAL
Application: A212971 | Product #002
Applicant: L PERRIGO CO
Approved: Feb 24, 2020 | RLD: No | RS: No | Type: OTC